FAERS Safety Report 24110479 (Version 1)
Quarter: 2024Q3

REPORT INFORMATION
  Report Type: Spontaneous
  Country: FR (occurrence: FR)
  Receive Date: 20240718
  Receipt Date: 20240718
  Transmission Date: 20241017
  Serious: Yes (Other)
  Sender: TEVA
  Company Number: None

PATIENT
  Age: 11 Month
  Sex: Male
  Weight: 10 kg

DRUGS (8)
  1. FLUCONAZOLE [Suspect]
     Active Substance: FLUCONAZOLE
     Indication: Acidosis
     Route: 065
     Dates: start: 20240422, end: 20240429
  2. LAROTRECTINIB [Concomitant]
     Active Substance: LAROTRECTINIB
     Indication: Product used for unknown indication
     Dosage: LAROTRECTINIB (SULFATE)
     Route: 065
     Dates: start: 20240419
  3. ACTINOMYCINE [Concomitant]
     Indication: Product used for unknown indication
     Dosage: ACTINOMYCINE D
     Route: 065
     Dates: start: 20240413, end: 20240413
  4. AUGMENTIN [Suspect]
     Active Substance: AMOXICILLIN\CLAVULANATE POTASSIUM
     Indication: Bacterial infection
     Route: 065
     Dates: start: 20240401, end: 20240411
  5. DOXORUBICIN HYDROCHLORIDE [Concomitant]
     Active Substance: DOXORUBICIN HYDROCHLORIDE
     Indication: Product used for unknown indication
     Route: 065
     Dates: start: 20240419, end: 20240420
  6. MESNA [Concomitant]
     Active Substance: MESNA
     Indication: Product used for unknown indication
     Route: 065
     Dates: start: 20240416, end: 20240419
  7. VINCRISTINE SULFATE [Concomitant]
     Active Substance: VINCRISTINE SULFATE
     Indication: Product used for unknown indication
     Route: 065
     Dates: start: 20240413, end: 20240413
  8. CYCLOPHOSPHAMIDE [Concomitant]
     Active Substance: CYCLOPHOSPHAMIDE
     Indication: Product used for unknown indication
     Route: 065
     Dates: start: 20240416, end: 20240419

REACTIONS (1)
  - Jaundice cholestatic [Recovering/Resolving]

NARRATIVE: CASE EVENT DATE: 20240423
